FAERS Safety Report 4403431-9 (Version None)
Quarter: 2004Q3

REPORT INFORMATION
  Report Type: 
  Country: None (occurrence: None)
  Receive Date: 20040720
  Receipt Date: 20040708
  Transmission Date: 20050211
  Serious: Yes (Death, Hospitalization)
  Sender: FDA-Public Use
  Company Number: 04P-163-0255433-00

PATIENT
  Age: 46 Year
  Sex: Female
  Weight: 92.0802 kg

DRUGS (8)
  1. HUMIRA [Suspect]
     Indication: RHEUMATOID ARTHRITIS
     Dosage: 40 MG, SUBCUTANEOUS
     Route: 058
     Dates: start: 20031201, end: 20040315
  2. ATENOLOL [Concomitant]
  3. CALCIUM ACETATE [Concomitant]
  4. PROVELLA-14 [Concomitant]
  5. LEVOTHYROXINE SODIUM [Concomitant]
  6. PREDNISONE [Concomitant]
  7. QUININE [Concomitant]
  8. COUMADIN [Concomitant]

REACTIONS (5)
  - BLOOD PRESSURE DECREASED [None]
  - HAEMOPHILUS SEPSIS [None]
  - PNEUMONIA [None]
  - RESPIRATORY DISTRESS [None]
  - UPPER RESPIRATORY TRACT INFECTION [None]
